FAERS Safety Report 23798089 (Version 3)
Quarter: 2024Q3

REPORT INFORMATION
  Report Type: Report from Study
  Country: US (occurrence: US)
  Receive Date: 20240430
  Receipt Date: 20240709
  Transmission Date: 20241017
  Serious: Yes (Other)
  Sender: ACADIA PHARMACEUTICALS
  Company Number: US-ACADIA PHARMACEUTICALS INC.-ACA-2024-TRF-002021

PATIENT

DRUGS (2)
  1. DAYBUE [Suspect]
     Active Substance: TROFINETIDE
     Dosage: 2.5ML
     Route: 065
  2. DAYBUE [Suspect]
     Active Substance: TROFINETIDE
     Dosage: 3 MILLILITER
     Route: 065

REACTIONS (5)
  - Seizure [Recovered/Resolved]
  - Tremor [Unknown]
  - Underdose [Unknown]
  - Drug ineffective [Unknown]
  - Vomiting [Unknown]
